FAERS Safety Report 20265579 (Version 3)
Quarter: 2022Q3

REPORT INFORMATION
  Report Type: Report from Study
  Country: FR (occurrence: FR)
  Receive Date: 20211231
  Receipt Date: 20220729
  Transmission Date: 20221027
  Serious: Yes (Other)
  Sender: FDA-Public Use
  Company Number: FR-SERVIER-S21014398

PATIENT

DRUGS (2)
  1. IVOSIDENIB [Suspect]
     Active Substance: IVOSIDENIB
     Indication: Acute myeloid leukaemia
     Dosage: 500 MG, QD
     Route: 048
     Dates: end: 20211104
  2. IVOSIDENIB [Suspect]
     Active Substance: IVOSIDENIB
     Dosage: UNK
     Route: 065
     Dates: start: 20211125

REACTIONS (1)
  - Hepatic cytolysis [Recovered/Resolved]

NARRATIVE: CASE EVENT DATE: 20211104
